FAERS Safety Report 5779165-5 (Version None)
Quarter: 2008Q2

REPORT INFORMATION
  Report Type: 
  Country: None (occurrence: None)
  Receive Date: 20080619
  Receipt Date: 20080227
  Transmission Date: 20081010
  Serious: No
  Sender: FDA-Public Use
  Company Number: US-BAYER-200810886BCC

PATIENT
  Age: 70 Year
  Sex: Female
  Weight: 53 kg

DRUGS (5)
  1. ALEVE [Suspect]
     Indication: BACK PAIN
     Dosage: AS USED: 220 MG  UNIT DOSE: 220 MG
     Route: 048
     Dates: start: 20080226
  2. LIPITOR [Concomitant]
  3. ACTONEL [Concomitant]
  4. RIFAMPIN [Concomitant]
  5. ZITHROMAX [Concomitant]

REACTIONS (1)
  - BACK PAIN [None]
